FAERS Safety Report 11102173 (Version 3)
Quarter: 2015Q2

REPORT INFORMATION
  Report Type: Spontaneous
  Country: US (occurrence: None)
  Receive Date: 20150507
  Receipt Date: 20150612
  Transmission Date: 20150821
  Serious: Yes (Death, Hospitalization)
  Sender: FDA-Public Use
  Company Number: US-H14001-15-00643

PATIENT
  Age: 65 Year
  Sex: Female

DRUGS (7)
  1. ACETAMINOPHEN (PARACETAMOL) [Concomitant]
     Active Substance: ACETAMINOPHEN
  2. AMIODARONE (AMIODARONE) [Suspect]
     Active Substance: AMIODARONE
     Indication: ATRIAL FIBRILLATION
     Dosage: 200 MG, 3 DOSES, ORAL
     Route: 048
  3. ANTIBIOTICS (ANTIBIOTICS) [Concomitant]
     Active Substance: UNSPECIFIED INGREDIENT
  4. CIPROFLAXIN (CIPROGLOXACIN) [Concomitant]
  5. FLUIDS (ALL OTHER THERAPEUTIC PRODUCTS) [Concomitant]
  6. AMIODARONE (AMIODARONE) [Suspect]
     Active Substance: AMIODARONE
     Indication: ATRIAL FIBRILLATION
     Route: 040
     Dates: start: 2013
  7. PREDNISONE (PREDNISONE) [Concomitant]
     Active Substance: PREDNISONE

REACTIONS (8)
  - Blood bilirubin increased [None]
  - Alanine aminotransferase increased [None]
  - Drug-induced liver injury [None]
  - Hypotension [None]
  - Nausea [None]
  - Aspartate aminotransferase increased [None]
  - Fungaemia [None]
  - Multi-organ failure [None]

NARRATIVE: CASE EVENT DATE: 2013
